FAERS Safety Report 18493500 (Version 1)
Quarter: 2020Q4

REPORT INFORMATION
  Report Type: Report from Study
  Country: US (occurrence: US)
  Receive Date: 20201112
  Receipt Date: 20201112
  Transmission Date: 20210114
  Serious: Yes (Other)
  Sender: FDA-Public Use
  Company Number: US-ROCHE-2709483

PATIENT
  Age: 36 Year
  Sex: Female
  Weight: 75.3 kg

DRUGS (1)
  1. ATEZOLIZUMAB. [Suspect]
     Active Substance: ATEZOLIZUMAB
     Indication: CERVIX CARCINOMA
     Dosage: DOSE RECEIVED ON: 16/DEC/2019 AND 06/JAN/2020
     Route: 041
     Dates: start: 20191126

REACTIONS (3)
  - Stomatitis [Unknown]
  - Pain in extremity [Unknown]
  - Lymphocyte count decreased [Unknown]
